FAERS Safety Report 5074652-X (Version None)
Quarter: 2006Q3

REPORT INFORMATION
  Report Type: 
  Country: None (occurrence: None)
  Receive Date: 20060803
  Receipt Date: 20060722
  Transmission Date: 20061208
  Serious: Yes (Disabling, Other)
  Sender: FDA-Public Use
  Company Number: 2006083450

PATIENT
  Age: 71 Year
  Sex: Male
  Weight: 77.1115 kg

DRUGS (13)
  1. LYRICA [Suspect]
     Indication: NEUROPATHY PERIPHERAL
     Dosage: 50 MG (50 MG, 1 IN 1 D)
     Dates: start: 20060628, end: 20060701
  2. MECLIZINE [Suspect]
     Indication: DRUG USE FOR UNKNOWN INDICATION
     Dates: start: 19960101
  3. LUTEIN (XANTHOPHYLL) [Concomitant]
  4. ALLEGRA [Concomitant]
  5. TRIAMTERENE AND HYDROCHLOROTHIAZIDE [Concomitant]
  6. GABAPENTIN [Concomitant]
  7. ALLOPURINOL [Concomitant]
  8. AMITRIPTYLINE HCL [Concomitant]
  9. LIDODERM PATCH (LIDOCAINE HYDROCHLORIDE) [Concomitant]
  10. NASONEX [Concomitant]
  11. MULTIVITAMIN [Concomitant]
  12. CALCIUM GLUCONATE [Concomitant]
  13. ALL OTHER THERAPEUTIC PRODUCTS [Concomitant]

REACTIONS (3)
  - DEAFNESS [None]
  - MENIERE'S DISEASE [None]
  - NEUROPATHY PERIPHERAL [None]
